FAERS Safety Report 7802560-7 (Version None)
Quarter: 2011Q4

REPORT INFORMATION
  Report Type: 
  Country: None (occurrence: None)
  Receive Date: 20111005
  Receipt Date: 20110922
  Transmission Date: 20120403
  Serious: Yes (Death, Other)
  Sender: FDA-Public Use
  Company Number: 2011206897

PATIENT
  Age: 63 Year
  Sex: Male

DRUGS (8)
  1. CYCLIZINE (CYCLIZINE) [Concomitant]
  2. DOMPERIDONE (DOMPERIDONE) [Concomitant]
  3. DALTEPARIN SODIUM [Suspect]
     Indication: LUNG NEOPLASM MALIGNANT
     Dates: start: 20090929, end: 20100223
  4. DEXAMETHASONE [Concomitant]
  5. DIHYDROCODEINE BITARTRATE INJ [Concomitant]
  6. ONDANSETRON [Concomitant]
  7. ZOPICLONE (ZOPICLONE) [Concomitant]
  8. LANSOPRAZOLE [Concomitant]

REACTIONS (4)
  - FALL [None]
  - URETERIC INJURY [None]
  - GENERAL PHYSICAL HEALTH DETERIORATION [None]
  - SPLENIC RUPTURE [None]
